FAERS Safety Report 6803231-6 (Version None)
Quarter: 2010Q2

REPORT INFORMATION
  Report Type: 
  Country: None (occurrence: None)
  Receive Date: 20100628
  Receipt Date: 20100618
  Transmission Date: 20101027
  Serious: Yes (Disabling)
  Sender: FDA-Public Use
  Company Number: B0662213A

PATIENT
  Sex: Female
  Weight: 69 kg

DRUGS (3)
  1. LAPATINIB [Suspect]
     Indication: BREAST CANCER
     Dosage: 1000MG PER DAY
     Route: 048
     Dates: start: 20100225, end: 20100617
  2. EPIRUBICIN [Suspect]
     Indication: BREAST CANCER
     Dosage: 90MGM2 EVERY 3 WEEKS
     Route: 042
     Dates: start: 20100225
  3. CYCLOPHOSPHAMIDE [Suspect]
     Indication: BREAST CANCER
     Dosage: 600MGM2 EVERY 3 WEEKS
     Route: 042
     Dates: start: 20100225

REACTIONS (3)
  - CARDIAC FAILURE [None]
  - CARDIOMYOPATHY [None]
  - VENTRICULAR HYPOKINESIA [None]
